FAERS Safety Report 6485607-2 (Version None)
Quarter: 2009Q4

REPORT INFORMATION
  Report Type: 
  Country: None (occurrence: None)
  Receive Date: 20091209
  Receipt Date: 20090702
  Transmission Date: 20100525
  Serious: No
  Sender: FDA-Public Use
  Company Number: US-AMGEN-KDL354370

PATIENT
  Sex: Female
  Weight: 46.8 kg

DRUGS (3)
  1. ENBREL [Suspect]
     Indication: RHEUMATOID ARTHRITIS
     Route: 058
     Dates: start: 20011201, end: 20090623
  2. METHOTREXATE [Concomitant]
     Route: 048
     Dates: start: 19800101
  3. ACTONEL [Concomitant]

REACTIONS (1)
  - HERPES ZOSTER [None]
